FAERS Safety Report 15808125 (Version 5)
Quarter: 2019Q2

REPORT INFORMATION
  Report Type: Report from Study
  Country: US (occurrence: US)
  Receive Date: 20190110
  Receipt Date: 20190517
  Transmission Date: 20190711
  Serious: No
  Sender: FDA-Public Use
  Company Number: PHEH2019US000723

PATIENT
  Sex: Female
  Weight: 64.8 kg

DRUGS (3)
  1. ENTRESTO [Suspect]
     Active Substance: SACUBITRIL\VALSARTAN
     Indication: CARDIAC FAILURE CONGESTIVE
     Dosage: UNK UNK, BID
     Route: 048
  2. ENTRESTO [Suspect]
     Active Substance: SACUBITRIL\VALSARTAN
     Dosage: 50 MG (SACUBITRIL 24MG/VALSARTAN 26MG), UNK
     Route: 048
  3. ENTRESTO [Suspect]
     Active Substance: SACUBITRIL\VALSARTAN
     Dosage: 100 MG (SACUBITRIL 49MG/VALSARTAN 51MG), UNK
     Route: 048

REACTIONS (6)
  - Dizziness [Recovered/Resolved]
  - Weight fluctuation [Unknown]
  - Ill-defined disorder [Unknown]
  - Weight increased [Unknown]
  - Arthritis [Unknown]
  - Memory impairment [Unknown]
